FAERS Safety Report 14955088 (Version 6)
Quarter: 2019Q3

REPORT INFORMATION
  Report Type: Report from Study
  Country: None (occurrence: US)
  Receive Date: 20180531
  Receipt Date: 20190916
  Transmission Date: 20191004
  Serious: Yes (Other)
  Sender: FDA-Public Use
  Company Number: US-ABBVIE-18K-163-2212788-00

PATIENT
  Age: 68 Year
  Sex: Female
  Weight: 113.05 kg

DRUGS (23)
  1. HUMIRA [Suspect]
     Active Substance: ADALIMUMAB
     Route: 058
  2. HUMIRA [Suspect]
     Active Substance: ADALIMUMAB
     Route: 058
  3. BUSPIRONE [Concomitant]
     Active Substance: BUSPIRONE HYDROCHLORIDE
     Indication: ANXIETY
  4. BUSPIRONE [Concomitant]
     Active Substance: BUSPIRONE HYDROCHLORIDE
     Indication: PANIC ATTACK
  5. VENTOLIN [Concomitant]
     Active Substance: ALBUTEROL SULFATE
     Indication: DYSPNOEA
  6. LOSARTAN. [Concomitant]
     Active Substance: LOSARTAN
     Indication: HYPERTENSION
  7. VITAMIN D [Concomitant]
     Active Substance: VITAMIN D NOS
     Indication: VITAMIN SUPPLEMENTATION
  8. FUROSEMIDE. [Concomitant]
     Active Substance: FUROSEMIDE
     Indication: PRODUCT USED FOR UNKNOWN INDICATION
  9. HUMIRA [Suspect]
     Active Substance: ADALIMUMAB
     Route: 058
     Dates: start: 2017, end: 20180213
  10. PAROXETINE. [Concomitant]
     Active Substance: PAROXETINE
     Indication: DEPRESSION
     Route: 048
  11. FIBER CHOICE PLUS CALCIUM [Concomitant]
     Indication: CONSTIPATION
  12. MOMETASONE [Concomitant]
     Active Substance: MOMETASONE
     Indication: RASH
  13. HUMIRA [Suspect]
     Active Substance: ADALIMUMAB
     Indication: HIDRADENITIS
     Route: 058
     Dates: start: 20170413, end: 2017
  14. RESTASIS [Concomitant]
     Active Substance: CYCLOSPORINE
     Indication: DRY EYE
  15. LORAZEPAM. [Concomitant]
     Active Substance: LORAZEPAM
     Indication: ANXIETY
  16. FUROATE DE FLUTICASONE CREAM [Concomitant]
     Indication: RASH
  17. HUMIRA [Suspect]
     Active Substance: ADALIMUMAB
     Route: 058
     Dates: start: 20180220
  18. LORAZEPAM. [Concomitant]
     Active Substance: LORAZEPAM
     Indication: PANIC ATTACK
  19. ADVAIR DISKUS [Concomitant]
     Active Substance: FLUTICASONE PROPIONATE\SALMETEROL XINAFOATE
     Indication: ASTHMA
  20. FAMOTIDINE. [Concomitant]
     Active Substance: FAMOTIDINE
     Indication: PRODUCT USED FOR UNKNOWN INDICATION
  21. ALBUTEROL SULFATE. [Concomitant]
     Active Substance: ALBUTEROL SULFATE
     Indication: DYSPNOEA
  22. ALLOPURINOL. [Concomitant]
     Active Substance: ALLOPURINOL
     Indication: GOUT
  23. FLAXSEED [Concomitant]
     Active Substance: FLAX SEED
     Indication: DRY EYE

REACTIONS (34)
  - Melanocytic naevus [Unknown]
  - Acrochordon [Unknown]
  - Asthma [Not Recovered/Not Resolved]
  - Vomiting [Unknown]
  - Cold sweat [Unknown]
  - Middle ear effusion [Unknown]
  - Basal cell carcinoma [Unknown]
  - Skin cancer [Recovered/Resolved]
  - Secretion discharge [Unknown]
  - Respiratory disorder [Unknown]
  - Limb injury [Unknown]
  - Pulmonary sarcoidosis [Unknown]
  - Vertigo [Recovered/Resolved]
  - Hidradenitis [Unknown]
  - Injection site pain [Unknown]
  - Ingrowing nail [Recovering/Resolving]
  - Ankylosing spondylitis [Unknown]
  - Onychalgia [Unknown]
  - Speech disorder [Unknown]
  - Nail discolouration [Unknown]
  - Insomnia [Unknown]
  - Sensitivity to weather change [Unknown]
  - Chronic obstructive pulmonary disease [Recovered/Resolved]
  - Bronchitis [Unknown]
  - Nephropathy [Recovering/Resolving]
  - Vertigo [Unknown]
  - Fall [Unknown]
  - Limb injury [Recovered/Resolved]
  - Hypotension [Unknown]
  - Sleep apnoea syndrome [Unknown]
  - Lumbar spinal stenosis [Unknown]
  - Chronic kidney disease [Unknown]
  - Bronchitis [Recovered/Resolved]
  - Lower respiratory tract infection [Unknown]

NARRATIVE: CASE EVENT DATE: 2017
